FAERS Safety Report 5709568-6 (Version None)
Quarter: 2008Q2

REPORT INFORMATION
  Report Type: 
  Country: None (occurrence: None)
  Receive Date: 20080418
  Receipt Date: 20080409
  Transmission Date: 20081010
  Serious: Yes (Other)
  Sender: FDA-Public Use
  Company Number: GB-AVENTIS-200813248GDDC

PATIENT
  Age: 50 Year
  Sex: Female

DRUGS (4)
  1. DOCETAXEL [Suspect]
     Indication: BREAST CANCER
     Dosage: DOSE: UNK
  2. ZOLEDRONIC ACID [Concomitant]
  3. DEXAMETHASONE TAB [Concomitant]
  4. DOMPERIDONE [Concomitant]

REACTIONS (6)
  - ABDOMINAL DISTENSION [None]
  - ASCITES [None]
  - CAPILLARY LEAK SYNDROME [None]
  - DYSPNOEA [None]
  - OEDEMA PERIPHERAL [None]
  - PERICARDIAL EFFUSION [None]
